FAERS Safety Report 20466030 (Version 6)
Quarter: 2024Q1

REPORT INFORMATION
  Report Type: Other
  Country: NL (occurrence: None)
  Receive Date: 20220212
  Receipt Date: 20240216
  Transmission Date: 20240409
  Serious: No
  Sender: FDA-Public Use
  Company Number: NL-ROCHE-3020588

PATIENT
  Age: 54 Year
  Sex: Male

DRUGS (18)
  1. OCRELIZUMAB [Suspect]
     Active Substance: OCRELIZUMAB
     Indication: Relapsing-remitting multiple sclerosis
     Dosage: SUBSEQUENT DOSE ON 22/AUG/2019
     Route: 042
     Dates: start: 20190808, end: 20190808
  2. OCRELIZUMAB [Suspect]
     Active Substance: OCRELIZUMAB
     Route: 042
     Dates: start: 20220322, end: 20220322
  3. OCRELIZUMAB [Suspect]
     Active Substance: OCRELIZUMAB
     Dosage: SUBSEQUENT DOSE ON 18/AUG/2020, 20/FEB/2020, 23/FEB/2021.
     Route: 042
     Dates: start: 20230314, end: 20230314
  4. OCRELIZUMAB [Suspect]
     Active Substance: OCRELIZUMAB
     Route: 042
     Dates: start: 20220921, end: 20220921
  5. OCRELIZUMAB [Suspect]
     Active Substance: OCRELIZUMAB
     Route: 042
     Dates: start: 20210826, end: 20210826
  6. OCRELIZUMAB [Suspect]
     Active Substance: OCRELIZUMAB
     Route: 042
     Dates: start: 20230920, end: 20230920
  7. SOLU-MEDROL [Concomitant]
     Active Substance: METHYLPREDNISOLONE SODIUM SUCCINATE
     Route: 042
     Dates: start: 20210826, end: 20210826
  8. SOLU-MEDROL [Concomitant]
     Active Substance: METHYLPREDNISOLONE SODIUM SUCCINATE
     Route: 042
     Dates: start: 20210223, end: 20210223
  9. SOLU-MEDROL [Concomitant]
     Active Substance: METHYLPREDNISOLONE SODIUM SUCCINATE
     Dosage: MEDICATION SUBCATEGORY: CORTICOSTEROIDS
     Route: 042
     Dates: start: 20220322, end: 20220322
  10. CLEMASTINE [Concomitant]
     Active Substance: CLEMASTINE
     Route: 048
     Dates: start: 20210826, end: 20210826
  11. CLEMASTINE [Concomitant]
     Active Substance: CLEMASTINE
     Route: 048
     Dates: start: 20210223, end: 20210223
  12. CLEMASTINE [Concomitant]
     Active Substance: CLEMASTINE
     Dosage: MEDICATION SUBCATEGORY: ANTI-HISTAMINICS
     Route: 048
     Dates: start: 20220322, end: 20220322
  13. ACETAMINOPHEN [Concomitant]
     Active Substance: ACETAMINOPHEN
     Indication: Prophylaxis
     Route: 048
     Dates: start: 20210223, end: 20210223
  14. ACETAMINOPHEN [Concomitant]
     Active Substance: ACETAMINOPHEN
     Route: 048
     Dates: start: 20210826, end: 20210826
  15. ACETAMINOPHEN [Concomitant]
     Active Substance: ACETAMINOPHEN
     Route: 048
     Dates: start: 20210223, end: 20210223
  16. ACETAMINOPHEN [Concomitant]
     Active Substance: ACETAMINOPHEN
     Dosage: MEDICATION SUBCATEGORY: ANTI-PYRETICS
     Route: 048
     Dates: start: 20220322, end: 20220322
  17. DALFAMPRIDINE [Concomitant]
     Active Substance: DALFAMPRIDINE
     Dosage: FOR MS SYMPTOMATIC TREATMENTS
     Route: 048
     Dates: start: 20191125
  18. JANSSEN COVID-19 VACCINE [Concomitant]
     Active Substance: AD26.COV2.S
     Indication: Prophylaxis
     Dates: start: 202105, end: 202105

REACTIONS (1)
  - SARS-CoV-2 test positive [Recovered/Resolved]

NARRATIVE: CASE EVENT DATE: 20220129
